FAERS Safety Report 9292027 (Version 2)
Quarter: 2013Q2

REPORT INFORMATION
  Report Type: Spontaneous
  Country: US (occurrence: US)
  Receive Date: 20130516
  Receipt Date: 20130624
  Transmission Date: 20140414
  Serious: No
  Sender: FDA-Public Use
  Company Number: US-PFIZER INC-2013146743

PATIENT
  Age: 53 Year
  Sex: Male
  Weight: 118 kg

DRUGS (2)
  1. VIAGRA [Suspect]
     Indication: ERECTILE DYSFUNCTION
     Dosage: 50 MG DAILY
     Route: 048
     Dates: start: 2012
  2. ANDROGEL [Concomitant]
     Indication: HORMONE THERAPY
     Dosage: DAILY
     Dates: start: 201208

REACTIONS (1)
  - Drug ineffective [Unknown]
